FAERS Safety Report 14897885 (Version 2)
Quarter: 2018Q2

REPORT INFORMATION
  Report Type: Spontaneous
  Country: US (occurrence: US)
  Receive Date: 20180515
  Receipt Date: 20180517
  Transmission Date: 20180711
  Serious: No
  Sender: FDA-Public Use
  Company Number: US-SA-2017SA215636

PATIENT
  Age: 57 Year
  Sex: Female

DRUGS (2)
  1. TOUJEO [Suspect]
     Active Substance: INSULIN GLARGINE
     Indication: TYPE 1 DIABETES MELLITUS
     Route: 051
     Dates: start: 20171012
  2. SOLOSTAR [Suspect]
     Active Substance: DEVICE
     Dates: start: 20171012

REACTIONS (1)
  - Blood glucose abnormal [Not Recovered/Not Resolved]
